FAERS Safety Report 8570906-0 (Version None)
Quarter: 2012Q3

REPORT INFORMATION
  Report Type: 
  Country: None (occurrence: None)
  Receive Date: 20120806
  Receipt Date: 20120725
  Transmission Date: 20120928
  Serious: No
  Sender: FDA-Public Use
  Company Number: US-BIOGENIDEC-2012BI000095

PATIENT
  Age: 53 Year
  Sex: Male

DRUGS (4)
  1. TYSABRI [Suspect]
     Indication: MULTIPLE SCLEROSIS
     Route: 042
     Dates: start: 20071001
  2. CORTISONE CREAM [Concomitant]
     Indication: MECHANICAL URTICARIA
  3. CORTISONE CREAM [Concomitant]
     Indication: HYPERAESTHESIA
  4. CLARITIN [Concomitant]
     Indication: HYPERAESTHESIA

REACTIONS (4)
  - PRURITUS [None]
  - HYPERTENSION [None]
  - RASH ERYTHEMATOUS [None]
  - AMNESIA [None]
